FAERS Safety Report 19496323 (Version 1)
Quarter: 2021Q3

REPORT INFORMATION
  Report Type: Spontaneous
  Country: US (occurrence: US)
  Receive Date: 20210702
  Receipt Date: 20210702
  Transmission Date: 20211014
  Serious: Yes (Other)
  Sender: FDA-Public Use
  Company Number: None

PATIENT
  Age: 27 Year
  Sex: Female
  Weight: 53.1 kg

DRUGS (5)
  1. JUNEL FE 1.5 MG?30 MCG//75MG [Concomitant]
     Dates: start: 20200116, end: 20210422
  2. VYVANSE 20MG CAPSULE [Concomitant]
  3. PREDNISONE 20MG [Concomitant]
     Active Substance: PREDNISONE
  4. OXYCODONE 5MG [Concomitant]
     Active Substance: OXYCODONE
  5. GAMUNEX?C [Suspect]
     Active Substance: HUMAN IMMUNOGLOBULIN G
     Dosage: ?          OTHER FREQUENCY:EVERY 4 WEEKS;?
     Route: 042
     Dates: start: 20200615, end: 20210414

REACTIONS (1)
  - Retinal artery occlusion [None]

NARRATIVE: CASE EVENT DATE: 20210414
